FAERS Safety Report 4541752-X (Version None)
Quarter: 2004Q4

REPORT INFORMATION
  Report Type: 
  Country: None (occurrence: None)
  Receive Date: 20041227
  Receipt Date: 20041215
  Transmission Date: 20050328
  Serious: Yes (Hospitalization)
  Sender: FDA-Public Use
  Company Number: 2004241460FR

PATIENT
  Age: 78 Year
  Sex: Female

DRUGS (14)
  1. ZYVOX [Suspect]
     Indication: INFECTION
     Dosage: ORAL
     Route: 048
     Dates: start: 20040324, end: 20040604
  2. PROMETHAZINE HYDROCHLORIDE TAB [Suspect]
     Indication: ILL-DEFINED DISORDER
     Dosage: 25 MG (25 MG, DAILY), ORAL
     Route: 048
     Dates: end: 20040605
  3. PRISTINAMYCIN (PRISTINAMYCIN) [Suspect]
     Indication: INFECTION
     Dosage: SEE IMAGE
     Route: 048
     Dates: start: 20040324, end: 20040505
  4. PRISTINAMYCIN (PRISTINAMYCIN) [Suspect]
     Indication: INFECTION
     Dosage: SEE IMAGE
     Route: 048
     Dates: start: 20040506, end: 20040604
  5. CEFTRIAXONE [Suspect]
     Indication: INFECTION
     Dosage: 2 GRAM (I GRAM, TWICE DAILY), INTRAMUSCULAR
     Dates: start: 20040324, end: 20040604
  6. OMEPRAZOLE [Concomitant]
  7. DIGOXIN [Concomitant]
  8. CELIPROLOL (CELIPROLOL) [Concomitant]
  9. REPAGLINIDE (REPAGLINIDE) [Concomitant]
  10. DIFRAREL (BETACAROTENE, MYRTILLUS) [Concomitant]
  11. ACETYLSALICYLIC ACID SRT [Concomitant]
  12. HYDROXYZINE HCL [Concomitant]
  13. METOCLOPRAMIDE HYDROCHLORIDE [Concomitant]
  14. ZOPICLONE (ZOPICLONE) [Concomitant]

REACTIONS (15)
  - ACIDOSIS [None]
  - ANAEMIA [None]
  - BICYTOPENIA [None]
  - BLOOD CREATINE INCREASED [None]
  - BLOOD POTASSIUM INCREASED [None]
  - BLOOD UREA INCREASED [None]
  - DRUG TOXICITY [None]
  - DYSPNOEA EXERTIONAL [None]
  - ELECTROPHORESIS [None]
  - ELECTROPHORESIS PROTEIN ABNORMAL [None]
  - GAMMA-GLUTAMYLTRANSFERASE INCREASED [None]
  - GENERAL PHYSICAL HEALTH DETERIORATION [None]
  - IMMUNOGLOBULINS INCREASED [None]
  - INFLAMMATION [None]
  - THROMBOCYTOPENIA [None]
